FAERS Safety Report 9457839 (Version 1)
Quarter: 2013Q3

REPORT INFORMATION
  Report Type: Spontaneous
  Country: IT (occurrence: None)
  Receive Date: 20130812
  Receipt Date: 20130812
  Transmission Date: 20140515
  Serious: Yes (Other)
  Sender: FDA-Public Use
  Company Number: GER/ITL/13/0033800

PATIENT
  Age: 76 Year
  Sex: Female

DRUGS (8)
  1. QUETIAPINE [Suspect]
     Indication: BEHAVIOURAL AND PSYCHIATRIC SYMPTOMS OF DEMENTIA
     Dosage: 1 D
     Route: 048
     Dates: start: 20130411, end: 20130717
  2. QUETIAPINE [Suspect]
     Dosage: 1 D
     Route: 048
     Dates: start: 20130411, end: 20130717
  3. DAPAROX [Concomitant]
  4. CONGESCOR [Concomitant]
  5. LASIX [Concomitant]
  6. MONOKET [Concomitant]
  7. PEPTAZOL [Concomitant]
  8. PRADAXA [Concomitant]

REACTIONS (2)
  - Parkinsonism [None]
  - Off label use [None]
